FAERS Safety Report 4464653-4 (Version None)
Quarter: 2004Q3

REPORT INFORMATION
  Report Type: 
  Country: None (occurrence: None)
  Receive Date: 20040928
  Receipt Date: 20040915
  Transmission Date: 20050211
  Serious: Yes (Death, Other)
  Sender: FDA-Public Use
  Company Number: 2004066826

PATIENT
  Sex: 0

DRUGS (3)
  1. ZIPRASIDONE [Suspect]
     Indication: ILL-DEFINED DISORDER
     Dosage: 120 MG (60 MG, 2 IN 1 D), ORAL
     Route: 048
  2. CLOZAPINE [Suspect]
     Indication: ILL-DEFINED DISORDER
  3. PIMOZIDE (PIMOZIDE) [Concomitant]

REACTIONS (1)
  - CARDIOMYOPATHY [None]
